FAERS Safety Report 13036773 (Version 1)
Quarter: 2016Q4

REPORT INFORMATION
  Report Type: Report from Study
  Country: US (occurrence: US)
  Receive Date: 20161216
  Receipt Date: 20161216
  Transmission Date: 20170207
  Serious: Yes (Hospitalization)
  Sender: FDA-Public Use
  Company Number: US-ACTELION-A-NJ2016-144921

PATIENT
  Age: 62 Year
  Sex: Female
  Weight: 80.73 kg

DRUGS (7)
  1. UPTRAVI [Suspect]
     Active Substance: SELEXIPAG
     Indication: PULMONARY ARTERIAL HYPERTENSION
     Dosage: 1400 MCG, BID
     Route: 048
     Dates: end: 201612
  2. UPTRAVI [Suspect]
     Active Substance: SELEXIPAG
     Dosage: 1200 MCG, BID
     Route: 048
     Dates: end: 201612
  3. UPTRAVI [Suspect]
     Active Substance: SELEXIPAG
     Dosage: 600 MCG, BID
     Route: 048
  4. WARFARIN [Concomitant]
     Active Substance: WARFARIN
  5. UPTRAVI [Suspect]
     Active Substance: SELEXIPAG
     Dosage: 200 MCG, BID
     Route: 048
     Dates: start: 20161018
  6. UPTRAVI [Suspect]
     Active Substance: SELEXIPAG
     Dosage: 400 MCG, BID
     Route: 048
     Dates: start: 20161018
  7. ADCIRCA [Concomitant]
     Active Substance: TADALAFIL

REACTIONS (20)
  - Swelling [Unknown]
  - Hypersensitivity [Unknown]
  - Fibromyalgia [Unknown]
  - Productive cough [Unknown]
  - Wheezing [Unknown]
  - Chills [Unknown]
  - Nausea [Unknown]
  - Pulmonary oedema [Unknown]
  - Myalgia [Unknown]
  - Cataract [Unknown]
  - Lower respiratory tract infection [Unknown]
  - Cough [Unknown]
  - Nasopharyngitis [Unknown]
  - Peripheral swelling [Unknown]
  - Headache [Unknown]
  - Dyspnoea [Unknown]
  - Unevaluable event [Unknown]
  - Lung infection [Unknown]
  - Diarrhoea [Unknown]
  - Neck pain [Unknown]

NARRATIVE: CASE EVENT DATE: 20161107
